FAERS Safety Report 24224169 (Version 3)
Quarter: 2024Q4

REPORT INFORMATION
  Report Type: Spontaneous
  Country: GB (occurrence: GB)
  Receive Date: 20240819
  Receipt Date: 20241107
  Transmission Date: 20250115
  Serious: Yes (Other)
  Sender: NOVARTIS
  Company Number: GB-002147023-NVSC2024GB165559

PATIENT
  Age: 79 Year
  Sex: Male
  Weight: 96 kg

DRUGS (3)
  1. LEQVIO [Suspect]
     Active Substance: INCLISIRAN SODIUM
     Indication: Myocardial ischaemia
     Dosage: UNK (0.3 MONTHS)
     Route: 058
     Dates: start: 202405, end: 20240813
  2. EZETIMIBE [Concomitant]
     Active Substance: EZETIMIBE
     Indication: Myocardial ischaemia
     Dosage: UNK, QD
     Route: 065
  3. FENOFIBRATE [Concomitant]
     Active Substance: FENOFIBRATE
     Indication: Myocardial ischaemia
     Dosage: UNK, QD
     Route: 065

REACTIONS (9)
  - Diabetes mellitus inadequate control [Unknown]
  - Arthritis reactive [Unknown]
  - Arthropathy [Recovering/Resolving]
  - C-reactive protein increased [Unknown]
  - Inflammation [Unknown]
  - Peripheral swelling [Unknown]
  - Pain [Unknown]
  - Arthralgia [Unknown]
  - Off label use [Unknown]
